FAERS Safety Report 7998610-8 (Version None)
Quarter: 2011Q4

REPORT INFORMATION
  Report Type: 
  Country: None (occurrence: None)
  Receive Date: 20111221
  Receipt Date: 20111216
  Transmission Date: 20120403
  Serious: Yes (Other)
  Sender: FDA-Public Use
  Company Number: US-ABBOTT-11P-163-0883916-00

PATIENT
  Sex: Male
  Weight: 72.64 kg

DRUGS (3)
  1. HUMIRA [Suspect]
     Route: 058
     Dates: start: 20100101, end: 20100101
  2. CIMZIA [Suspect]
     Indication: CROHN'S DISEASE
     Dates: start: 20110501, end: 20111101
  3. HUMIRA [Suspect]
     Indication: CROHN'S DISEASE
     Route: 058
     Dates: start: 20100101, end: 20110501

REACTIONS (6)
  - FATIGUE [None]
  - ABDOMINAL PAIN [None]
  - CROHN'S DISEASE [None]
  - DRUG INEFFECTIVE [None]
  - OFF LABEL USE [None]
  - DIARRHOEA [None]
